FAERS Safety Report 7362644-7 (Version None)
Quarter: 2011Q1

REPORT INFORMATION
  Report Type: 
  Country: None (occurrence: None)
  Receive Date: 20110320
  Receipt Date: 20110309
  Transmission Date: 20110831
  Serious: Yes (Other)
  Sender: FDA-Public Use
  Company Number: GB-BRISTOL-MYERS SQUIBB COMPANY-15597677

PATIENT
  Age: 4 Year
  Sex: Male

DRUGS (7)
  1. CISPLATIN [Suspect]
     Indication: RHABDOMYOSARCOMA
     Dosage: 1 DF:TOTAL 177G/M2
  2. DOXORUBICIN [Suspect]
     Indication: RHABDOMYOSARCOMA
     Route: 042
  3. IFOSFAMIDE [Suspect]
     Indication: RHABDOMYOSARCOMA
     Dosage: INFUSION TOTAL 177G/M2 ,9 G/M2 COURSE AS A 72 HOUR CONTINOUS INF
     Route: 065
  4. ACTINOMYCIN D [Suspect]
     Indication: RHABDOMYOSARCOMA
     Route: 042
  5. CYCLOPHOSPHAMIDE [Suspect]
     Indication: RHABDOMYOSARCOMA
  6. ETOPOSIDE [Suspect]
     Indication: RHABDOMYOSARCOMA
     Route: 042
  7. VINCRISTINE [Suspect]
     Indication: RHABDOMYOSARCOMA
     Route: 042

REACTIONS (4)
  - HYPERPARATHYROIDISM SECONDARY [None]
  - FANCONI SYNDROME [None]
  - NEPHROPATHY TOXIC [None]
  - RICKETS [None]
